FAERS Safety Report 23073011 (Version 3)
Quarter: 2024Q1

REPORT INFORMATION
  Report Type: Report from Study
  Country: CA (occurrence: CA)
  Receive Date: 20231017
  Receipt Date: 20240112
  Transmission Date: 20240409
  Serious: Yes (Death, Hospitalization)
  Sender: FDA-Public Use
  Company Number: CA-JNJFOC-20230229774

PATIENT
  Age: 54 Year
  Sex: Female
  Weight: 131 kg

DRUGS (1)
  1. REMICADE [Suspect]
     Active Substance: INFLIXIMAB
     Indication: Hidradenitis
     Route: 041
     Dates: start: 20190730

REACTIONS (10)
  - Death [Fatal]
  - Infection [Unknown]
  - Colectomy [Recovering/Resolving]
  - Bedridden [Unknown]
  - Hidradenitis [Unknown]
  - Gait disturbance [Unknown]
  - Wound [Unknown]
  - Arthritis [Unknown]
  - Illness [Unknown]
  - Inappropriate schedule of product administration [Unknown]

NARRATIVE: CASE EVENT DATE: 20230101
